FAERS Safety Report 5231301-5 (Version None)
Quarter: 2007Q1

REPORT INFORMATION
  Report Type: 
  Country: None (occurrence: None)
  Receive Date: 20070205
  Receipt Date: 20070205
  Transmission Date: 20070707
  Serious: No
  Sender: FDA-Public Use
  Company Number: None

PATIENT
  Age: 47 Year
  Sex: Female

DRUGS (2)
  1. IMATINIB MESYLATE [Suspect]
  2. MERCAPTOPURINE [Suspect]

REACTIONS (2)
  - HEPATIC ENZYME ABNORMAL [None]
  - THROMBOCYTOPENIA [None]
